FAERS Safety Report 15010895 (Version 2)
Quarter: 2018Q2

REPORT INFORMATION
  Report Type: Spontaneous
  Country: JP (occurrence: JP)
  Receive Date: 20180614
  Receipt Date: 20180615
  Transmission Date: 20180711
  Serious: Yes (Death, Other)
  Sender: FDA-Public Use
  Company Number: JP-PFIZER INC-2018234109

PATIENT
  Sex: Male

DRUGS (1)
  1. SELARA 50MG [Suspect]
     Active Substance: EPLERENONE
     Indication: CARDIAC FAILURE CHRONIC
     Dosage: 50 MG, DAILY

REACTIONS (2)
  - Hyperkalaemia [Unknown]
  - Death [Fatal]
